FAERS Safety Report 6253695-4 (Version None)
Quarter: 2009Q2

REPORT INFORMATION
  Report Type: 
  Country: None (occurrence: None)
  Receive Date: 20090630
  Receipt Date: 20090617
  Transmission Date: 20091009
  Serious: Yes (Hospitalization)
  Sender: FDA-Public Use
  Company Number: 236771K09USA

PATIENT
  Age: 60 Year
  Sex: Female

DRUGS (6)
  1. REBIF [Suspect]
     Indication: MULTIPLE SCLEROSIS
     Dosage: 44 MCG, 3 IN 1 WEEKS, SUBCUTANEOUS
     Route: 058
     Dates: start: 20071126
  2. NEURONTIN [Concomitant]
  3. ZOLOFT [Concomitant]
  4. LIPITOR (ATROVASTATIN /01326101/) [Concomitant]
  5. SINGULAIR (MONTELUKAST /01362601/) [Concomitant]
  6. AMANTADINE HCL [Concomitant]

REACTIONS (3)
  - ABDOMINAL PAIN LOWER [None]
  - APPENDICITIS PERFORATED [None]
  - MULTIPLE SCLEROSIS RELAPSE [None]
